FAERS Safety Report 18048565 (Version 1)
Quarter: 2020Q3

REPORT INFORMATION
  Report Type: Spontaneous
  Country: DE (occurrence: DE)
  Receive Date: 20200721
  Receipt Date: 20200721
  Transmission Date: 20201103
  Serious: Yes (Other)
  Sender: FDA-Public Use
  Company Number: NVSC2020DE199788

PATIENT
  Age: 50 Year
  Sex: Male
  Weight: 111 kg

DRUGS (1)
  1. EPLERENONE. [Suspect]
     Active Substance: EPLERENONE
     Indication: PRODUCT USED FOR UNKNOWN INDICATION
     Dosage: 25 MG, QD
     Route: 048
     Dates: start: 20200421

REACTIONS (5)
  - Swelling [Unknown]
  - Muscle discomfort [Unknown]
  - Pruritus [Unknown]
  - Musculoskeletal discomfort [Unknown]
  - Deafness neurosensory [Unknown]

NARRATIVE: CASE EVENT DATE: 20200421
